FAERS Safety Report 8010622-7 (Version None)
Quarter: 2011Q4

REPORT INFORMATION
  Report Type: 
  Country: None (occurrence: None)
  Receive Date: 20111228
  Receipt Date: 20111219
  Transmission Date: 20120403
  Serious: Yes (Death)
  Sender: FDA-Public Use
  Company Number: US-PFIZER INC-2011308751

PATIENT
  Age: 27 Year
  Sex: Female

DRUGS (5)
  1. ALPRAZOLAM [Suspect]
  2. RISPERIDONE [Suspect]
  3. ETHANOL [Suspect]
  4. METFORMIN HYDROCHLORIDE [Suspect]
  5. BENZTROPINE MESYLATE [Suspect]

REACTIONS (1)
  - COMPLETED SUICIDE [None]
